FAERS Safety Report 7548066-4 (Version None)
Quarter: 2011Q2

REPORT INFORMATION
  Report Type: 
  Country: None (occurrence: None)
  Receive Date: 20110615
  Receipt Date: 20110601
  Transmission Date: 20111010
  Serious: Yes (Hospitalization, Other)
  Sender: FDA-Public Use
  Company Number: US-ELI_LILLY_AND_COMPANY-US201003001853

PATIENT
  Sex: Female

DRUGS (15)
  1. FORTEO [Suspect]
     Indication: OSTEOPOROSIS
     Dosage: 20 UG, DAILY (1/D)
     Dates: start: 20100224
  2. FORTEO [Suspect]
     Dosage: 20 UG, DAILY (1/D)
  3. FORTEO [Suspect]
     Dosage: 20 UG, DAILY (1/D)
  4. FORTEO [Suspect]
     Dosage: 20 UG, QD
  5. METFORMIN HCL [Concomitant]
     Dosage: 500 MG, DAILY (1/D)
  6. FORTEO [Suspect]
     Dosage: 20 UG, DAILY (1/D)
  7. LOVASTATIN [Concomitant]
     Dosage: 40 MG, DAILY (1/D)
  8. PROMETHAZINE [Concomitant]
     Dosage: 25 MG, AS NEEDED
  9. FORTEO [Suspect]
     Dosage: 20 UG, QD
     Route: 065
  10. DIAZEPAM [Concomitant]
     Indication: MUSCLE SPASMS
     Dosage: 5 MG, AS NEEDED
  11. HYDROCODONE BITARTRATE [Concomitant]
     Dosage: 7.5 D/F, EVERY 4 HRS
  12. ACTOS [Concomitant]
     Dosage: 45 MG, DAILY (1/D)
  13. ANTIDEPRESSANTS [Concomitant]
     Indication: FIBROMYALGIA
  14. AMITRIPTYLINE HCL [Concomitant]
     Dosage: 25 MG, DAILY (1/D)
  15. DILTIAZEM [Concomitant]
     Dosage: 180 MG, DAILY (1/D)

REACTIONS (19)
  - SURGERY [None]
  - BACK PAIN [None]
  - SPINAL FRACTURE [None]
  - FIBROMYALGIA [None]
  - DYSGEUSIA [None]
  - INJECTION SITE DISCOLOURATION [None]
  - PLATELET COUNT DECREASED [None]
  - GAIT DISTURBANCE [None]
  - INJECTION SITE HAEMATOMA [None]
  - SKIN MASS [None]
  - CONTUSION [None]
  - SCREAMING [None]
  - DRUG DOSE OMISSION [None]
  - PAIN [None]
  - INJECTION SITE HAEMORRHAGE [None]
  - INJECTION SITE PAIN [None]
  - INJECTION SITE ERYTHEMA [None]
  - FEELING ABNORMAL [None]
  - ARTHRALGIA [None]
